FAERS Safety Report 9462919 (Version 1)
Quarter: 2013Q3

REPORT INFORMATION
  Report Type: Spontaneous
  Country: JP (occurrence: None)
  Receive Date: 20130814
  Receipt Date: 20130814
  Transmission Date: 20140515
  Serious: No
  Sender: FDA-Public Use
  Company Number: TCI2013A04805

PATIENT
  Sex: 0

DRUGS (2)
  1. TAKEPRON (LANSOPRAZOLE) [Suspect]
     Route: 048
  2. FIBRATES [Suspect]
     Route: 048

REACTIONS (1)
  - Rhabdomyolysis [None]
